FAERS Safety Report 6640313-6 (Version None)
Quarter: 2010Q1

REPORT INFORMATION
  Report Type: 
  Country: None (occurrence: None)
  Receive Date: 20100318
  Receipt Date: 20100304
  Transmission Date: 20100710
  Serious: Yes (Other)
  Sender: FDA-Public Use
  Company Number: CA-JNJFOC-20100302933

PATIENT
  Age: 79 Year
  Sex: Male

DRUGS (1)
  1. REMINYL [Suspect]
     Indication: DRUG USE FOR UNKNOWN INDICATION
     Route: 065

REACTIONS (6)
  - ARRHYTHMIA [None]
  - BRADYCARDIA [None]
  - DIARRHOEA [None]
  - HYPERTENSION [None]
  - MEDICATION ERROR [None]
  - VOMITING [None]
